FAERS Safety Report 6518825-5 (Version None)
Quarter: 2009Q4

REPORT INFORMATION
  Report Type: 
  Country: None (occurrence: None)
  Receive Date: 20091228
  Receipt Date: 20091216
  Transmission Date: 20100525
  Serious: No
  Sender: FDA-Public Use
  Company Number: US-JNJFOC-20091205161

PATIENT
  Sex: Female
  Weight: 86.18 kg

DRUGS (3)
  1. FENTANYL-100 [Suspect]
     Indication: ARTHRALGIA
     Route: 062
  2. FENTANYL-100 [Suspect]
     Route: 062
  3. UNKNOWN MEDICATION [Concomitant]

REACTIONS (3)
  - PRODUCT ADHESION ISSUE [None]
  - WITHDRAWAL SYNDROME [None]
  - WRONG TECHNIQUE IN DRUG USAGE PROCESS [None]
